FAERS Safety Report 5217087-9 (Version None)
Quarter: 2007Q1

REPORT INFORMATION
  Report Type: 
  Country: None (occurrence: None)
  Receive Date: 20070118
  Receipt Date: 20070111
  Transmission Date: 20070707
  Serious: Yes (Other)
  Sender: FDA-Public Use
  Company Number: HQWYE337902APR04

PATIENT
  Age: 68 Year
  Sex: Female

DRUGS (31)
  1. RAPAMUNE [Suspect]
     Indication: PROPHYLAXIS AGAINST TRANSPLANT REJECTION
     Dosage: SEE IMAGE
     Route: 048
     Dates: start: 20040321, end: 20040323
  2. RAPAMUNE [Suspect]
     Indication: PROPHYLAXIS AGAINST TRANSPLANT REJECTION
     Dosage: SEE IMAGE
     Route: 048
     Dates: start: 20040324, end: 20040324
  3. RAPAMUNE [Suspect]
     Indication: PROPHYLAXIS AGAINST TRANSPLANT REJECTION
     Dosage: SEE IMAGE
     Route: 048
     Dates: start: 20040325, end: 20040330
  4. SEPTRA [Concomitant]
  5. ERYTHROPOIETIN (ERYTHROPOIETIN) [Concomitant]
  6. PREDNISONE TAB [Concomitant]
  7. METHYLPREDNISOLONE [Concomitant]
  8. OMEPRAZOLE [Concomitant]
  9. DOXAZOSIN (DOXAZOSIN) [Concomitant]
  10. AMLODIPINE [Concomitant]
  11. LORAZEPAM [Concomitant]
  12. MYCOPHENOLATE MOFETIL [Concomitant]
  13. DIPYRONE TAB [Concomitant]
  14. AUGMENTIN '125' [Concomitant]
  15. MORPHINE [Concomitant]
  16. RANITIDINE [Concomitant]
  17. CEFTRIAXONE [Concomitant]
  18. ACETAMINOPHEN [Concomitant]
  19. MORPHINE [Concomitant]
  20. ACETAMINOPHEN [Concomitant]
  21. NIFEDIPINE [Concomitant]
  22. FUROSEMIDE [Concomitant]
  23. YATROX (ONDANSETRON HYDROCHLORIDE) [Concomitant]
  24. POLARAMINE [Concomitant]
  25. CEFAZOLIN [Concomitant]
  26. PANTOCARM (PANTOPRAZOLE) [Concomitant]
  27. METOCLOPRAMIDE HYDROCHLORIDE [Concomitant]
  28. VANCOMYCIN [Concomitant]
  29. HEXAMIDINE (HEXAMIDINE) [Concomitant]
  30. NYSTATINE (NYSTATIN) [Concomitant]
  31. ACETAMINOPHEN [Concomitant]

REACTIONS (2)
  - KIDNEY TRANSPLANT REJECTION [None]
  - THROMBOTIC MICROANGIOPATHY [None]
